FAERS Safety Report 6248823-0 (Version None)
Quarter: 2009Q2

REPORT INFORMATION
  Report Type: 
  Country: None (occurrence: None)
  Receive Date: 20090629
  Receipt Date: 20090617
  Transmission Date: 20091009
  Serious: Yes (Other)
  Sender: FDA-Public Use
  Company Number: US-ELI_LILLY_AND_COMPANY-US200811000532

PATIENT
  Age: 50 Year
  Sex: Female
  Weight: 140.59 kg

DRUGS (3)
  1. ZYPREXA [Suspect]
     Dates: start: 19980101, end: 20030101
  2. CYMBALTA [Suspect]
     Indication: DEPRESSION
     Dosage: 60 MG, UNK
  3. LAMICTAL [Concomitant]
     Indication: BIPOLAR DISORDER
     Dosage: 300 MG, UNK

REACTIONS (4)
  - BLOOD ALKALINE PHOSPHATASE INCREASED [None]
  - DIABETES MELLITUS [None]
  - OEDEMA [None]
  - WEIGHT INCREASED [None]
